FAERS Safety Report 19450220 (Version 1)
Quarter: 2021Q2

REPORT INFORMATION
  Report Type: Spontaneous
  Country: FR (occurrence: FR)
  Receive Date: 20210622
  Receipt Date: 20210622
  Transmission Date: 20210717
  Serious: Yes (Hospitalization)
  Sender: FDA-Public Use
  Company Number: FR-PFIZER INC-2021688521

PATIENT
  Age: 60 Year
  Sex: Male
  Weight: 95 kg

DRUGS (5)
  1. DEPAKOTE [Concomitant]
     Active Substance: DIVALPROEX SODIUM
     Dosage: 1 DF, 1X/DAY
     Route: 048
     Dates: end: 20210531
  2. VENLAFAXINE HCL [Suspect]
     Active Substance: VENLAFAXINE HYDROCHLORIDE
     Indication: MIXED ANXIETY AND DEPRESSIVE DISORDER
     Dosage: 75 MG, 1X/DAY
     Route: 048
     Dates: start: 202104, end: 20210531
  3. SILDENAFIL CITRATE. [Suspect]
     Active Substance: SILDENAFIL CITRATE
     Indication: ERECTILE DYSFUNCTION
     Dosage: 1 ADMINISTRATION IN THE PREVIOUS DAYS
     Route: 048
     Dates: start: 202105, end: 202105
  4. ABILIFY [Suspect]
     Active Substance: ARIPIPRAZOLE
     Indication: MIXED ANXIETY AND DEPRESSIVE DISORDER
     Dosage: 1 DF, 1X/DAY
     Route: 048
     Dates: end: 20210531
  5. INEXIUM [ESOMEPRAZOLE SODIUM] [Concomitant]
     Active Substance: ESOMEPRAZOLE SODIUM
     Dosage: 1 DF, 1X/DAY
     Route: 048

REACTIONS (1)
  - Thunderclap headache [Recovered/Resolved]

NARRATIVE: CASE EVENT DATE: 20210531
